FAERS Safety Report 4765892-5 (Version None)
Quarter: 2005Q3

REPORT INFORMATION
  Report Type: 
  Country: None (occurrence: None)
  Receive Date: 20050906
  Receipt Date: 20050824
  Transmission Date: 20060218
  Serious: Yes (Hospitalization)
  Sender: FDA-Public Use
  Company Number: HQWYE682603AUG05

PATIENT
  Age: 70 Year
  Sex: Female

DRUGS (4)
  1. ETODOLAC [Suspect]
     Indication: SPINAL OSTEOARTHRITIS
     Dosage: 400 MG 1X PER 1 DAY ORAL
     Route: 048
     Dates: start: 20050611, end: 20050724
  2. MUCOSTA (REBAMIPIDE, ) [Suspect]
     Dosage: 200 MG 1X PER 1 DAY ORAL
     Route: 048
     Dates: start: 20050711
  3. NORVASC [Concomitant]
  4. LOSARTAN POTASSIUM [Concomitant]

REACTIONS (2)
  - DRUG ERUPTION [None]
  - RASH [None]
